FAERS Safety Report 15655582 (Version 2)
Quarter: 2018Q4

REPORT INFORMATION
  Report Type: Spontaneous
  Country: US (occurrence: US)
  Receive Date: 20181126
  Receipt Date: 20181129
  Transmission Date: 20190205
  Serious: No
  Sender: FDA-Public Use
  Company Number: US-SA-2018SA118974

PATIENT
  Age: 79 Year
  Sex: Female
  Weight: 61.2 kg

DRUGS (1)
  1. LANTUS SOLOSTAR [Suspect]
     Active Substance: INSULIN GLARGINE
     Indication: TYPE 2 DIABETES MELLITUS
     Dosage: 30 IU,QD
     Route: 051
     Dates: start: 2016

REACTIONS (5)
  - Vomiting [Unknown]
  - Blood glucose increased [Unknown]
  - Device issue [Unknown]
  - Pyrexia [Unknown]
  - Pollakiuria [Unknown]

NARRATIVE: CASE EVENT DATE: 20180423
